FAERS Safety Report 6447707-2 (Version None)
Quarter: 2009Q4

REPORT INFORMATION
  Report Type: 
  Country: None (occurrence: None)
  Receive Date: 20091120
  Receipt Date: 20091112
  Transmission Date: 20100525
  Serious: Yes (Death, Hospitalization)
  Sender: FDA-Public Use
  Company Number: US-BIOGENIDEC-2009BI036586

PATIENT
  Age: 60 Year
  Sex: Female
  Weight: 51 kg

DRUGS (17)
  1. TYSABRI [Suspect]
     Indication: MULTIPLE SCLEROSIS
     Route: 042
     Dates: start: 20071210, end: 20091007
  2. DEPAKOTE [Concomitant]
  3. CARBATROL [Concomitant]
  4. ZANTAC [Concomitant]
  5. KEPPRA [Concomitant]
  6. TOVIAZ [Concomitant]
     Indication: URINARY INCONTINENCE
  7. LIPITOR [Concomitant]
  8. ZETIA [Concomitant]
  9. ARICEPT [Concomitant]
  10. FOSAMAX [Concomitant]
  11. HUMALOG [Concomitant]
  12. ASCORBIC ACID [Concomitant]
  13. MULTI-VITAMIN [Concomitant]
  14. GLUCOSAMINE [Concomitant]
  15. CHONDROITIN [Concomitant]
  16. CALCIUM [Concomitant]
  17. VITAMIN D [Concomitant]

REACTIONS (5)
  - ATRIAL FIBRILLATION [None]
  - ATRIAL FLUTTER [None]
  - DEATH [None]
  - HIP FRACTURE [None]
  - MEMORY IMPAIRMENT [None]
